FAERS Safety Report 16854904 (Version 1)
Quarter: 2019Q3

REPORT INFORMATION
  Report Type: Spontaneous
  Country: FR (occurrence: FR)
  Receive Date: 20190926
  Receipt Date: 20190926
  Transmission Date: 20191005
  Serious: Yes (Hospitalization, Other)
  Sender: FDA-Public Use
  Company Number: FR-TEVA-2019-FR-1112422

PATIENT
  Age: 61 Year
  Sex: Male
  Weight: 88.3 kg

DRUGS (14)
  1. CISPLATINE [Suspect]
     Active Substance: CISPLATIN
     Indication: LIP AND/OR ORAL CAVITY CANCER
     Dosage: 75 MG/KG, EVERY 3 WEEKS
     Route: 041
     Dates: start: 20150720, end: 20150917
  2. DOCETAXEL HOSPIRA [Suspect]
     Active Substance: DOCETAXEL
     Indication: LIP AND/OR ORAL CAVITY CANCER
     Dosage: 75 MG/M2, EVERY 3 WEEKS
     Route: 041
     Dates: start: 20150720, end: 20150917
  3. NEBILOX 5 MG, COMPRIME QUADRISECABLE [Concomitant]
     Dosage: 5 MG, 1X/DAY
     Route: 048
  4. KARDEGIC [Concomitant]
     Active Substance: ASPIRIN DL-LYSINE
     Dosage: 75 MG, 1X/DAY
     Route: 048
  5. PANTOPRAZOLE ARROW 40 MG, COMPRIME GASTRO-RESISTANT [Concomitant]
     Active Substance: PANTOPRAZOLE SODIUM
     Dosage: 40 MG, 1X/DAY
     Route: 048
  6. VALACICLOVIR ARROW GENERIQUES 500 MG, COMPRIME PELLICULE [Concomitant]
     Dosage: 500 MG, 2X/DAY
     Route: 048
  7. PRAVASTATINE ACCORD 10 MG, COMPRIME [Concomitant]
     Dosage: 10 MG, 1X/DAY
     Route: 048
  8. IMOVANE [Concomitant]
     Active Substance: ZOPICLONE
     Dosage: 7.5 MG, 1X/DAY AS NEEDED
     Route: 048
  9. AUGMENTIN [Concomitant]
     Active Substance: AMOXICILLIN\CLAVULANATE POTASSIUM
     Dosage: UNK
     Dates: start: 20161101
  10. FLUOROURACILE [Suspect]
     Active Substance: FLUOROURACIL
     Indication: LIP AND/OR ORAL CAVITY CANCER
     Dosage: 750 MG/M2, CYCLIC FIVE TIMES (FROM DAY 1 TO DAY 5) EVERY 3 WEEKS
     Route: 041
     Dates: start: 20150720, end: 20150917
  11. LYRICA [Concomitant]
     Active Substance: PREGABALIN
     Dosage: 100 MG, 3X/DAY
     Route: 048
  12. APROVEL 150 MG, COMPRIME [Concomitant]
     Active Substance: IRBESARTAN
     Dosage: 150 MG, 1X/DAY
     Route: 048
  13. LERCAN 10 MG, COMPRIME PELLICULE SECABLE [Concomitant]
     Active Substance: LERCANIDIPINE HYDROCHLORIDE
     Dosage: 10 MG, 1X/DAY
     Route: 048
  14. HYDROXYZINE MYLAN 25 MG, COMPRIME PELLICULE SECABLE [Concomitant]
     Dosage: 25 MG, 3X/DAY
     Route: 048

REACTIONS (3)
  - Acute myeloid leukaemia [Recovering/Resolving]
  - Osteonecrosis of jaw [Unknown]
  - Second primary malignancy [Recovering/Resolving]

NARRATIVE: CASE EVENT DATE: 20170130
